FAERS Safety Report 5357229-8 (Version None)
Quarter: 2007Q2

REPORT INFORMATION
  Report Type: 
  Country: None (occurrence: None)
  Receive Date: 20070614
  Receipt Date: 20070606
  Transmission Date: 20071010
  Serious: Yes (Other)
  Sender: FDA-Public Use
  Company Number: FR-JNJFOC-20070601603

PATIENT
  Sex: Female

DRUGS (2)
  1. TAVANIC [Suspect]
     Indication: LUNG DISORDER
  2. TRAMADOL HCL [Suspect]
     Indication: PAIN

REACTIONS (2)
  - COORDINATION ABNORMAL [None]
  - TREMOR [None]
